FAERS Safety Report 4916300-2 (Version None)
Quarter: 2006Q1

REPORT INFORMATION
  Report Type: 
  Country: None (occurrence: None)
  Receive Date: 20060217
  Receipt Date: 20050112
  Transmission Date: 20060701
  Serious: Yes (Hospitalization, Other)
  Sender: FDA-Public Use
  Company Number: US-MERCK-0501USA02312

PATIENT
  Age: 63 Year
  Sex: Female
  Weight: 124 kg

DRUGS (1)
  1. VIOXX [Suspect]
     Indication: OSTEOARTHRITIS
     Route: 048
     Dates: start: 20030101, end: 20040901

REACTIONS (3)
  - ADVERSE EVENT [None]
  - MITRAL VALVE INCOMPETENCE [None]
  - SILENT MYOCARDIAL INFARCTION [None]
